FAERS Safety Report 6908577-9 (Version None)
Quarter: 2010Q3

REPORT INFORMATION
  Report Type: 
  Country: None (occurrence: None)
  Receive Date: 20100805
  Receipt Date: 20100715
  Transmission Date: 20110219
  Serious: Yes (Hospitalization)
  Sender: FDA-Public Use
  Company Number: AU-WATSON-2010-10547

PATIENT
  Age: 26 Year
  Sex: Male

DRUGS (1)
  1. IBUPROFEN TABLETS [Suspect]
     Indication: BACK PAIN
     Dosage: HIGH DOSE

REACTIONS (1)
  - DUODENAL STENOSIS [None]
